FAERS Safety Report 6209492-9 (Version None)
Quarter: 2009Q2

REPORT INFORMATION
  Report Type: 
  Country: None (occurrence: None)
  Receive Date: 20090601
  Receipt Date: 20090430
  Transmission Date: 20091009
  Serious: No
  Sender: FDA-Public Use
  Company Number: US-BAYER-200814042NA

PATIENT
  Age: 27 Year
  Sex: Female
  Weight: 59 kg

DRUGS (3)
  1. BETASERON [Suspect]
     Indication: RELAPSING-REMITTING MULTIPLE SCLEROSIS
     Dosage: TOTAL DAILY DOSE: 0.3 MG
     Dates: start: 20080210, end: 20080212
  2. BETASERON [Suspect]
     Dates: start: 20070701, end: 20080208
  3. ORTHO TRI-CYCLEN [Concomitant]
     Indication: CONTRACEPTION
     Dates: start: 19980101

REACTIONS (1)
  - MYALGIA [None]
